FAERS Safety Report 5042552-7 (Version None)
Quarter: 2006Q2

REPORT INFORMATION
  Report Type: 
  Country: None (occurrence: None)
  Receive Date: 20060627
  Receipt Date: 20060609
  Transmission Date: 20061013
  Serious: Yes (Hospitalization)
  Sender: FDA-Public Use
  Company Number: DSA_28348_2006

PATIENT
  Age: 81 Year
  Sex: Male

DRUGS (5)
  1. BI-TILDIEM [Suspect]
     Indication: ESSENTIAL HYPERTENSION
     Dosage: 120 MG QD PO
     Route: 048
     Dates: end: 20060519
  2. CARDENSIEL [Suspect]
     Indication: CARDIAC FAILURE
     Dosage: 2.5 MG QD PO
     Route: 048
     Dates: start: 20060512, end: 20060519
  3. CARDENSIEL [Suspect]
     Indication: CARDIAC FAILURE
     Dosage: 1.25 MG Q DAY PO
     Route: 048
     Dates: start: 20060501
  4. ALDACTONE [Concomitant]
  5. TRIATEC [Concomitant]

REACTIONS (5)
  - ATRIOVENTRICULAR BLOCK FIRST DEGREE [None]
  - BRADYCARDIA [None]
  - CHEST PAIN [None]
  - COLON CANCER [None]
  - METASTASES TO LIVER [None]
